FAERS Safety Report 5912005-X (Version None)
Quarter: 2008Q4

REPORT INFORMATION
  Report Type: 
  Country: None (occurrence: None)
  Receive Date: 20081008
  Receipt Date: 20081002
  Transmission Date: 20090506
  Serious: No
  Sender: FDA-Public Use
  Company Number: US-BAYER-200827733NA

PATIENT
  Age: 39 Year
  Sex: Female

DRUGS (2)
  1. YAZ [Suspect]
     Indication: CONTRACEPTION
     Route: 048
     Dates: start: 20071001
  2. SYNTHROID [Concomitant]
     Dates: start: 19690101

REACTIONS (2)
  - MIGRAINE [None]
  - THYROID FUNCTION TEST ABNORMAL [None]
